FAERS Safety Report 5339485-5 (Version None)
Quarter: 2007Q2

REPORT INFORMATION
  Report Type: 
  Country: None (occurrence: None)
  Receive Date: 20070525
  Receipt Date: 20070514
  Transmission Date: 20071010
  Serious: Yes (Hospitalization)
  Sender: FDA-Public Use
  Company Number: 2005-02218

PATIENT
  Age: 44 Year
  Sex: Female

DRUGS (2)
  1. VELCADE [Suspect]
     Indication: MULTIPLE MYELOMA
     Dosage: 2.70 MG, INTRAVENOUS
     Route: 042
     Dates: start: 20050923, end: 20050930
  2. DEXAMETHASONE [Suspect]
     Indication: MULTIPLE MYELOMA
     Dosage: 40.00 MG,ORAL
     Route: 048
     Dates: start: 20050923, end: 20050926

REACTIONS (4)
  - ABSCESS [None]
  - BACTERIAL INFECTION [None]
  - DEVICE RELATED INFECTION [None]
  - PURULENCE [None]
